FAERS Safety Report 6668508-6 (Version None)
Quarter: 2010Q2

REPORT INFORMATION
  Report Type: 
  Country: None (occurrence: None)
  Receive Date: 20100406
  Receipt Date: 20100323
  Transmission Date: 20101027
  Serious: Yes (Other)
  Sender: FDA-Public Use
  Company Number: US-JNJFOC-20100302584

PATIENT
  Sex: Male

DRUGS (2)
  1. LEVAQUIN [Suspect]
     Indication: INFECTION
     Route: 042
  2. LEVAQUIN [Suspect]
     Indication: DRUG USE FOR UNKNOWN INDICATION
     Route: 048

REACTIONS (6)
  - CONTRAINDICATION TO MEDICAL TREATMENT [None]
  - DELIRIUM [None]
  - HALLUCINATION [None]
  - JOINT INJURY [None]
  - LIGAMENT INJURY [None]
  - TENDON RUPTURE [None]
